FAERS Safety Report 7730740-8 (Version None)
Quarter: 2011Q3

REPORT INFORMATION
  Report Type: 
  Country: None (occurrence: None)
  Receive Date: 20110906
  Receipt Date: 20110825
  Transmission Date: 20111222
  Serious: Yes (Other)
  Sender: FDA-Public Use
  Company Number: JP-GLAXOSMITHKLINE-B0742450A

PATIENT
  Age: 7 Decade
  Sex: Male

DRUGS (5)
  1. REQUIP [Suspect]
     Indication: PARKINSON'S DISEASE
     Dosage: 2MG PER DAY
     Route: 048
     Dates: start: 20110801
  2. UNKNOWN DRUG [Suspect]
     Indication: PRODUCT USED FOR UNKNOWN INDICATION
     Route: 048
  3. SELEGILINE HCL [Suspect]
     Indication: PARKINSON'S DISEASE
     Route: 048
  4. SYMMETREL [Suspect]
     Indication: PARKINSON'S DISEASE
     Route: 048
  5. CARBIDOPA AND LEVODOPA [Suspect]
     Indication: PARKINSON'S DISEASE
     Route: 048

REACTIONS (3)
  - SUDDEN ONSET OF SLEEP [None]
  - FEELING ABNORMAL [None]
  - DISTURBANCE IN ATTENTION [None]
